FAERS Safety Report 4277590-5 (Version None)
Quarter: 2004Q1

REPORT INFORMATION
  Report Type: 
  Country: None (occurrence: None)
  Receive Date: 20040122
  Receipt Date: 20031120
  Transmission Date: 20041129
  Serious: Yes (Death, Life-Threatening, Hospitalization, Disabling)
  Sender: FDA-Public Use
  Company Number: WAES 0311DEU00109

PATIENT
  Age: 71 Year
  Sex: Male
  Weight: 77 kg

DRUGS (9)
  1. ZETIA [Suspect]
     Indication: HYPERCHOLESTEROLAEMIA
     Route: 048
     Dates: start: 20030123, end: 20031111
  2. FUROSEMIDE [Concomitant]
     Dates: start: 20010101
  3. GLIMEPIRIDE [Concomitant]
     Dates: start: 19990726
  4. IRBESARTAN [Concomitant]
     Dates: start: 20020722
  5. ISOSORBIDE DINITRATE [Concomitant]
     Dates: start: 19920101
  6. METOPROLOL SUCCINATE [Concomitant]
     Dates: start: 19920101
  7. PHENPROCOUMON [Concomitant]
     Indication: AORTIC VALVE REPLACEMENT
     Route: 048
     Dates: start: 20000217, end: 20031101
  8. ZOCOR [Concomitant]
     Indication: HYPERCHOLESTEROLAEMIA
     Route: 048
  9. TORSEMIDE [Concomitant]
     Dates: start: 19991011

REACTIONS (5)
  - COMA [None]
  - DIABETES MELLITUS INADEQUATE CONTROL [None]
  - RENAL FAILURE [None]
  - RESPIRATORY DISORDER [None]
  - SUBARACHNOID HAEMORRHAGE [None]
